FAERS Safety Report 4988984-4 (Version None)
Quarter: 2006Q2

REPORT INFORMATION
  Report Type: 
  Country: None (occurrence: None)
  Receive Date: 20060425
  Receipt Date: 20060412
  Transmission Date: 20061013
  Serious: Yes (Other)
  Sender: FDA-Public Use
  Company Number: 2006050817

PATIENT
  Sex: Female
  Weight: 79.3795 kg

DRUGS (2)
  1. XALATAN [Suspect]
     Indication: GLAUCOMA
     Dosage: 1 D, OPHTHALMIC
     Route: 047
     Dates: start: 20011201
  2. RISPERDAL [Concomitant]

REACTIONS (6)
  - CONDITION AGGRAVATED [None]
  - HYPERTENSION [None]
  - RETINITIS PIGMENTOSA [None]
  - SCOTOMA [None]
  - VISUAL DISTURBANCE [None]
  - VISUAL FIELD DEFECT [None]
